FAERS Safety Report 9627842 (Version 1)
Quarter: 2013Q4

REPORT INFORMATION
  Report Type: Not Available
  Country: US (occurrence: US)
  Receive Date: 20131016
  Receipt Date: 20131016
  Transmission Date: 20140711
  Serious: No
  Sender: FDA-Public Use
  Company Number: US-LUNDBECK-DKLU1092671

PATIENT
  Age: 8 Month
  Sex: Male

DRUGS (1)
  1. SABRIL (TABLET) [Suspect]
     Indication: INFANTILE SPASMS
     Route: 048
     Dates: start: 20130624

REACTIONS (2)
  - Pyrexia [Unknown]
  - Upper respiratory tract infection [Unknown]
